FAERS Safety Report 6968522-7 (Version None)
Quarter: 2010Q3

REPORT INFORMATION
  Report Type: 
  Country: None (occurrence: None)
  Receive Date: 20100903
  Receipt Date: 20100903
  Transmission Date: 20110219
  Serious: Yes (Other)
  Sender: FDA-Public Use
  Company Number: None

PATIENT
  Age: 77 Year
  Sex: Male
  Weight: 92.9874 kg

DRUGS (1)
  1. LEVAQUIN [Suspect]
     Indication: PNEUMONIA
     Dosage: I ONLY TOOK 1 PILL + THREW THE OTHER 9 AWAY. #300.00 DOWN THE TOILET!!
     Dates: start: 20100201

REACTIONS (13)
  - CHEST PAIN [None]
  - GINGIVAL PAIN [None]
  - HEADACHE [None]
  - HEART RATE INCREASED [None]
  - HYPOAESTHESIA [None]
  - LACRIMATION INCREASED [None]
  - LIP SWELLING [None]
  - NAUSEA [None]
  - PAIN IN EXTREMITY [None]
  - PALPITATIONS [None]
  - SWOLLEN TONGUE [None]
  - TENDON PAIN [None]
  - TOOTHACHE [None]
